FAERS Safety Report 8286340-7 (Version None)
Quarter: 2012Q1

REPORT INFORMATION
  Report Type: 
  Country: None (occurrence: None)
  Receive Date: 20120323
  Receipt Date: 20120221
  Transmission Date: 20120608
  Serious: Yes (Other)
  Sender: FDA-Public Use
  Company Number: 2012031410

PATIENT
  Age: 59 Year
  Sex: Female

DRUGS (2)
  1. PRIVIGEN [Suspect]
     Indication: CHRONIC GRAFT VERSUS HOST DISEASE
     Dosage: INTRAVENOUS (NOT OTHERWISE SPECIFIED)
     Route: 042
     Dates: start: 20120119, end: 20120119
  2. PRIVIGEN [Suspect]
     Indication: BONE MARROW TRANSPLANT
     Dosage: 20 G, 100 MG/ML, SOLUTION FOR INFUSION
     Dates: start: 20120215, end: 20120215

REACTIONS (3)
  - OFF LABEL USE [None]
  - ANAPHYLACTIC REACTION [None]
  - SYNCOPE [None]
